FAERS Safety Report 25105142 (Version 2)
Quarter: 2025Q2

REPORT INFORMATION
  Report Type: Spontaneous
  Country: FR (occurrence: FR)
  Receive Date: 20250321
  Receipt Date: 20250502
  Transmission Date: 20250716
  Serious: Yes (Death, Life-Threatening, Hospitalization, Other)
  Sender: BRISTOL-MYERS SQUIBB COMPANY
  Company Number: FR-BRISTOL-MYERS SQUIBB COMPANY-2025-041296

PATIENT
  Age: 70 Year
  Sex: Male
  Weight: 75 kg

DRUGS (3)
  1. OPDIVO [Suspect]
     Active Substance: NIVOLUMAB
     Indication: Pleural mesothelioma malignant
     Route: 042
     Dates: start: 20230313, end: 20230412
  2. OPDIVO [Suspect]
     Active Substance: NIVOLUMAB
  3. YERVOY [Suspect]
     Active Substance: IPILIMUMAB
     Indication: Pleural mesothelioma malignant
     Route: 042
     Dates: start: 20230313, end: 20230412

REACTIONS (2)
  - Malignant neoplasm progression [Fatal]
  - Acute respiratory distress syndrome [Recovered/Resolved]

NARRATIVE: CASE EVENT DATE: 20230419
